FAERS Safety Report 5473964-5 (Version None)
Quarter: 2007Q3

REPORT INFORMATION
  Report Type: 
  Country: None (occurrence: None)
  Receive Date: 20070904
  Receipt Date: 20060809
  Transmission Date: 20080115
  Serious: Yes (Other)
  Sender: FDA-Public Use
  Company Number: 2006097159

PATIENT
  Sex: Male

DRUGS (2)
  1. CAVERJECT [Suspect]
     Indication: ERECTILE DYSFUNCTION
     Dosage: 10 MCG (10 MCG, AS NECESSARY)
     Dates: start: 20040901
  2. DITROPAN XL [Concomitant]

REACTIONS (2)
  - ERECTILE DYSFUNCTION [None]
  - ERECTION INCREASED [None]
